FAERS Safety Report 7178393-4 (Version None)
Quarter: 2010Q4

REPORT INFORMATION
  Report Type: 
  Country: None (occurrence: None)
  Receive Date: 20101220
  Receipt Date: 20101207
  Transmission Date: 20110411
  Serious: Yes (Hospitalization)
  Sender: FDA-Public Use
  Company Number: US-WATSON-2010-15962

PATIENT
  Age: 44 Year
  Sex: Female

DRUGS (2)
  1. DIPHENHYDRAMINE HCL [Suspect]
     Indication: SUICIDE ATTEMPT
     Dosage: 3000 MG, SINGLE (60 X 50MG TABS)
     Route: 048
  2. ALCOHOL                            /00002101/ [Suspect]
     Indication: SUICIDE ATTEMPT
     Dosage: UNK
     Route: 048

REACTIONS (5)
  - ALCOHOL POISONING [None]
  - ELECTROCARDIOGRAM QT PROLONGED [None]
  - OVERDOSE [None]
  - SUICIDE ATTEMPT [None]
  - TORSADE DE POINTES [None]
